FAERS Safety Report 12880762 (Version 1)
Quarter: 2016Q4

REPORT INFORMATION
  Report Type: Spontaneous
  Country: US (occurrence: US)
  Receive Date: 20161024
  Receipt Date: 20161024
  Transmission Date: 20170207
  Serious: Yes (Disabling)
  Sender: FDA-Public Use
  Company Number: None

PATIENT
  Age: 52 Year
  Sex: Female
  Weight: 65.25 kg

DRUGS (17)
  1. FIRST MYERS IV MAGNESIUM, CALCIUM, SELENIUM, ZINC, VITAMIN B5, B6, B12, B COMPLEX AND VITAMIN C [Concomitant]
  2. GLUTATHIONE PUSH [Concomitant]
  3. CIPROFLOXACIN 250 MG [Suspect]
     Active Substance: CIPROFLOXACIN
     Indication: HAEMATURIA
     Dosage: ?          QUANTITY:10 TABLET(S);?
     Route: 048
     Dates: start: 20150917, end: 20150922
  4. BETAMETHASONE OINTMENT [Concomitant]
  5. METHYLCOBALAMIN. [Concomitant]
     Active Substance: METHYLCOBALAMIN
  6. BIO-D MULSION FORTE [Concomitant]
  7. 5 HYDROXYGABA [Concomitant]
  8. MYERS + AMINO ACIDS [Concomitant]
  9. EPSOM SALT [Concomitant]
     Active Substance: MAGNESIUM SULFATE
  10. MAGNESIUM OIL [Concomitant]
  11. MAGNESIUM CITRAMATE [Concomitant]
  12. CIPROFLOXACIN 250 MG [Suspect]
     Active Substance: CIPROFLOXACIN
     Indication: URINARY TRACT INFECTION
     Dosage: ?          QUANTITY:10 TABLET(S);?
     Route: 048
     Dates: start: 20150917, end: 20150922
  13. METOPROLOL ER SUCCINATE [Concomitant]
     Active Substance: METOPROLOL SUCCINATE
  14. ESTRADIOL. [Concomitant]
     Active Substance: ESTRADIOL
  15. PROOMEGA (FISH OIL) [Concomitant]
  16. METHYL GUARD (VIT B6, FOLATE, VIT B12) [Concomitant]
  17. NUTRIENT 950 (MULTI VITAMIN) [Concomitant]

REACTIONS (18)
  - Paraesthesia [None]
  - Hypoaesthesia [None]
  - Anxiety [None]
  - Insomnia [None]
  - Asthenia [None]
  - Photophobia [None]
  - Feeling abnormal [None]
  - Palpitations [None]
  - Chest discomfort [None]
  - Panic attack [None]
  - Polyp [None]
  - Dizziness [None]
  - Tremor [None]
  - Hot flush [None]
  - Cardiac flutter [None]
  - Presyncope [None]
  - Hyperacusis [None]
  - Hyperaesthesia [None]

NARRATIVE: CASE EVENT DATE: 20150925
